APPROVED DRUG PRODUCT: DEMEROL
Active Ingredient: MEPERIDINE HYDROCHLORIDE
Strength: 50MG/ML
Dosage Form/Route: INJECTABLE;INJECTION
Application: N005010 | Product #002
Applicant: QUAGEN PHARMACEUTICALS LLC
Approved: Approved Prior to Jan 1, 1982 | RLD: No | RS: No | Type: DISCN